FAERS Safety Report 18634363 (Version 1)
Quarter: 2020Q4

REPORT INFORMATION
  Report Type: Spontaneous
  Country: US (occurrence: US)
  Receive Date: 20201218
  Receipt Date: 20201218
  Transmission Date: 20210114
  Serious: Yes (Disabling)
  Sender: FDA-Public Use
  Company Number: None

PATIENT
  Age: 51 Year
  Sex: Male
  Weight: 108 kg

DRUGS (1)
  1. SILDENAFIL. [Suspect]
     Active Substance: SILDENAFIL
     Indication: ERECTILE DYSFUNCTION
     Route: 048
     Dates: start: 20201102, end: 20201204

REACTIONS (6)
  - Headache [None]
  - Aphasia [None]
  - Facial spasm [None]
  - Cerebrovascular accident [None]
  - Visual field defect [None]
  - Dizziness [None]

NARRATIVE: CASE EVENT DATE: 20201102
